FAERS Safety Report 10427178 (Version 2)
Quarter: 2014Q3

REPORT INFORMATION
  Report Type: Spontaneous
  Country: US (occurrence: US)
  Receive Date: 20140903
  Receipt Date: 20140903
  Transmission Date: 20150326
  Serious: No
  Sender: FDA-Public Use
  Company Number: US-BANPHARM-20142515

PATIENT
  Age: 64 Year
  Sex: Female
  Weight: 58.97 kg

DRUGS (5)
  1. ZYRTEC [Suspect]
     Active Substance: CETIRIZINE HYDROCHLORIDE
     Indication: HYPERSENSITIVITY
     Dosage: 1 DF, ONCE,
     Route: 048
     Dates: start: 20140331, end: 20140331
  2. FISH OIL [Concomitant]
     Active Substance: FISH OIL
  3. VITAMIN D [Concomitant]
     Active Substance: CHOLECALCIFEROL
     Dosage: QD,
  4. LETROZOLE. [Concomitant]
     Active Substance: LETROZOLE
  5. GLUCOSE [Concomitant]
     Active Substance: DEXTROSE

REACTIONS (1)
  - Drug ineffective [Unknown]
